FAERS Safety Report 14157026 (Version 1)
Quarter: 2017Q4

REPORT INFORMATION
  Report Type: Spontaneous
  Country: US (occurrence: US)
  Receive Date: 20171103
  Receipt Date: 20171103
  Transmission Date: 20180321
  Serious: Yes (Other)
  Sender: FDA-Public Use
  Company Number: None

PATIENT
  Age: 70 Year
  Weight: 126 kg

DRUGS (1)
  1. LIDOCAINE. [Suspect]
     Active Substance: LIDOCAINE
     Route: 040

REACTIONS (4)
  - Hypertension [None]
  - Abnormal behaviour [None]
  - Tachycardia [None]
  - Unresponsive to stimuli [None]

NARRATIVE: CASE EVENT DATE: 20171103
